FAERS Safety Report 15772328 (Version 4)
Quarter: 2019Q1

REPORT INFORMATION
  Report Type: Report from Study
  Country: US (occurrence: US)
  Receive Date: 20181228
  Receipt Date: 20190123
  Transmission Date: 20190417
  Serious: Yes (Hospitalization)
  Sender: FDA-Public Use
  Company Number: US-ACTELION-A-US2016-133626

PATIENT
  Age: 73 Year
  Sex: Female
  Weight: 85.71 kg

DRUGS (12)
  1. UPTRAVI [Suspect]
     Active Substance: SELEXIPAG
     Indication: PULMONARY HYPERTENSION
     Dosage: 600 MCG, BID
     Route: 048
     Dates: start: 20160229
  2. UPTRAVI [Suspect]
     Active Substance: SELEXIPAG
     Dosage: 1000 MCG, BID
     Route: 048
  3. LETAIRIS [Suspect]
     Active Substance: AMBRISENTAN
     Indication: PRODUCT USED FOR UNKNOWN INDICATION
     Dosage: 10 MG, QD
     Route: 065
     Dates: start: 20150202
  4. UPTRAVI [Suspect]
     Active Substance: SELEXIPAG
     Dosage: 800 MCG, BID
     Route: 048
  5. UPTRAVI [Suspect]
     Active Substance: SELEXIPAG
     Dosage: 200 MCG, BID
     Route: 048
  6. TYVASO [Suspect]
     Active Substance: TREPROSTINIL
     Indication: PRODUCT USED FOR UNKNOWN INDICATION
     Dosage: 18-54 MCG, UNK
     Route: 065
     Dates: start: 20130918, end: 201601
  7. FUROSEMIDE. [Concomitant]
     Active Substance: FUROSEMIDE
  8. REVATIO [Suspect]
     Active Substance: SILDENAFIL CITRATE
     Indication: PRODUCT USED FOR UNKNOWN INDICATION
     Route: 065
  9. WARFARIN [Concomitant]
     Active Substance: WARFARIN
  10. SILDENAFIL. [Concomitant]
     Active Substance: SILDENAFIL
  11. UPTRAVI [Suspect]
     Active Substance: SELEXIPAG
     Dosage: 400 MCG, BID
     Route: 048
     Dates: start: 20160506
  12. UPTRAVI [Suspect]
     Active Substance: SELEXIPAG
     Dosage: 600 MCG, QD
     Route: 048

REACTIONS (20)
  - Back pain [Unknown]
  - Seasonal allergy [Unknown]
  - Headache [Unknown]
  - Hospitalisation [Unknown]
  - Pulmonary arterial pressure increased [Unknown]
  - Burning sensation [Unknown]
  - Influenza like illness [Unknown]
  - Muscle tightness [Unknown]
  - Erythema [Unknown]
  - Arthralgia [Unknown]
  - Treatment noncompliance [Unknown]
  - Limb discomfort [Unknown]
  - Nasal congestion [Unknown]
  - Diarrhoea [Unknown]
  - Pain in extremity [Unknown]
  - Myalgia [Unknown]
  - Nausea [Unknown]
  - Flushing [Unknown]
  - Malaise [Unknown]
  - Pain [Unknown]

NARRATIVE: CASE EVENT DATE: 201604
